FAERS Safety Report 6763802-2 (Version None)
Quarter: 2010Q2

REPORT INFORMATION
  Report Type: 
  Country: None (occurrence: None)
  Receive Date: 20100610
  Receipt Date: 20100602
  Transmission Date: 20101027
  Serious: Yes (Other)
  Sender: FDA-Public Use
  Company Number: JP-ROCHE-708054

PATIENT
  Age: 1 Year

DRUGS (1)
  1. ROCEPHIN [Suspect]
     Route: 065

REACTIONS (1)
  - ENDOTOXIC SHOCK [None]
